FAERS Safety Report 5200557-7 (Version None)
Quarter: 2006Q4

REPORT INFORMATION
  Report Type: 
  Country: None (occurrence: None)
  Receive Date: 20061016
  Receipt Date: 20051121
  Transmission Date: 20070319
  Serious: Yes (Hospitalization, Other)
  Sender: FDA-Public Use
  Company Number: 2005159407

PATIENT
  Sex: Female
  Weight: 78.9259 kg

DRUGS (3)
  1. NEURONTIN [Suspect]
     Indication: DIABETIC NEUROPATHY
     Dosage: 3200 MG,
     Dates: end: 20051101
  2. HYDROCODONE BITARTRATE [Suspect]
     Indication: DIABETIC NEUROPATHY
     Dates: end: 20051101
  3. INSULIN [Concomitant]

REACTIONS (2)
  - NAUSEA [None]
  - VOMITING [None]
